FAERS Safety Report 7752707 (Version 21)
Quarter: 2020Q3

REPORT INFORMATION
  Report Type: Spontaneous
  Country: GB (occurrence: GB)
  Receive Date: 20110107
  Receipt Date: 20200831
  Transmission Date: 20201103
  Serious: Yes (Hospitalization, Disabling, Other)
  Sender: FDA-Public Use
  Company Number: GB-PFIZER INC-2011002289

PATIENT
  Age: 33 Year
  Sex: Female

DRUGS (1)
  1. CHAMPIX [Suspect]
     Active Substance: VARENICLINE TARTRATE
     Indication: SMOKING CESSATION THERAPY
     Dosage: 1 MG, 2X/DAY
     Dates: start: 200801, end: 200803

REACTIONS (24)
  - Psychotic disorder [Unknown]
  - Hallucination, visual [Unknown]
  - Blood cholesterol increased [Unknown]
  - Rapid eye movements sleep abnormal [Unknown]
  - Frontal lobe epilepsy [Not Recovered/Not Resolved]
  - Anger [Unknown]
  - Sjogren^s syndrome [Unknown]
  - Brain injury [Unknown]
  - Anxiety [Unknown]
  - Post-traumatic stress disorder [Unknown]
  - Suicidal ideation [Unknown]
  - Depression [Unknown]
  - Amnesia [Unknown]
  - Cardiac disorder [Unknown]
  - Fibromyalgia [Unknown]
  - Liver function test abnormal [Unknown]
  - Blood oestrogen decreased [Unknown]
  - Arthritis [Unknown]
  - Vitamin D deficiency [Unknown]
  - Nightmare [Unknown]
  - Substance use [Unknown]
  - Hormone level abnormal [Unknown]
  - Nephrolithiasis [Unknown]
  - Petechiae [Unknown]

NARRATIVE: CASE EVENT DATE: 2008
